FAERS Safety Report 17518290 (Version 1)
Quarter: 2020Q1

REPORT INFORMATION
  Report Type: Spontaneous
  Country: ES (occurrence: ES)
  Receive Date: 20200309
  Receipt Date: 20200309
  Transmission Date: 20200409
  Serious: Yes (Hospitalization)
  Sender: FDA-Public Use
  Company Number: ES-MYLANLABS-2020M1024538

PATIENT
  Age: 79 Year
  Sex: Female

DRUGS (5)
  1. QUETIAPINE. [Suspect]
     Active Substance: QUETIAPINE
     Indication: AGITATION
     Dosage: 25 MILLIGRAM, QD
     Route: 048
     Dates: start: 20191119, end: 20191215
  2. METAMIZOL MAGNESICO [Suspect]
     Active Substance: METAMIZOLE MAGNESIUM
     Indication: PAIN
     Dosage: 575 MILLIGRAM, Q8H
     Route: 048
     Dates: start: 20191211, end: 20191215
  3. METAMIZOL                          /06276701/ [Suspect]
     Active Substance: METAMIZOLE
     Indication: PAIN
     Dosage: 1.2 GRAM, Q8H
     Route: 042
     Dates: start: 20191208, end: 20191211
  4. METRONIDAZOL                       /00012501/ [Concomitant]
     Active Substance: METRONIDAZOLE
     Indication: COLITIS
     Dosage: 500 MILLIGRAM, Q8H
     Route: 048
     Dates: start: 20191119, end: 20191209
  5. MEROPENEM. [Suspect]
     Active Substance: MEROPENEM
     Indication: COLITIS
     Dosage: 1 GRAM, Q8H
     Route: 042
     Dates: start: 20191126, end: 20191210

REACTIONS (1)
  - Bicytopenia [Recovered/Resolved]

NARRATIVE: CASE EVENT DATE: 20191215
